FAERS Safety Report 11380966 (Version 1)
Quarter: 2015Q3

REPORT INFORMATION
  Report Type: Spontaneous
  Country: US (occurrence: None)
  Receive Date: 20150813
  Receipt Date: 20150813
  Transmission Date: 20151125
  Serious: No
  Sender: FDA-Public Use
  Company Number: None

PATIENT
  Age: 58 Year
  Sex: Female

DRUGS (5)
  1. MULTIVITAMIN CAP [Concomitant]
  2. MELATONIN [Concomitant]
     Active Substance: MELATONIN
  3. RIBASPHERE [Suspect]
     Active Substance: RIBAVIRIN
     Indication: VIRAL HEPATITIS CARRIER
     Route: 048
     Dates: start: 20150730
  4. VIEKERA [Concomitant]
  5. MILK THISTLE [Concomitant]
     Active Substance: MILK THISTLE

REACTIONS (2)
  - Pruritus [None]
  - Back pain [None]

NARRATIVE: CASE EVENT DATE: 201508
